FAERS Safety Report 5005043-5 (Version None)
Quarter: 2006Q2

REPORT INFORMATION
  Report Type: 
  Country: None (occurrence: None)
  Receive Date: 20060516
  Receipt Date: 20060516
  Transmission Date: 20061013
  Serious: Yes (Other)
  Sender: FDA-Public Use
  Company Number: None

PATIENT
  Age: 38 Year
  Sex: Female
  Weight: 56.6996 kg

DRUGS (1)
  1. CIPRO [Suspect]
     Indication: URINARY TRACT INFECTION
     Dosage: 500MG  BID  PO
     Route: 048
     Dates: start: 20030213, end: 20030215

REACTIONS (5)
  - ANXIETY [None]
  - BURNING SENSATION [None]
  - MYALGIA [None]
  - NEUROPATHY PERIPHERAL [None]
  - TENDON RUPTURE [None]
